FAERS Safety Report 5114378-7 (Version None)
Quarter: 2006Q3

REPORT INFORMATION
  Report Type: 
  Country: None (occurrence: None)
  Receive Date: 20060731
  Receipt Date: 20060605
  Transmission Date: 20061208
  Serious: No
  Sender: FDA-Public Use
  Company Number: 2006PV015076

PATIENT
  Sex: Female

DRUGS (1)
  1. BYETTA [Suspect]
     Indication: INSULIN RESISTANT DIABETES
     Dosage: BID ; SC
     Route: 058

REACTIONS (4)
  - ABDOMINAL PAIN UPPER [None]
  - INJECTION SITE URTICARIA [None]
  - INJECTION SITE WARMTH [None]
  - WEIGHT DECREASED [None]
